FAERS Safety Report 4600377-8 (Version None)
Quarter: 2005Q1

REPORT INFORMATION
  Report Type: 
  Country: None (occurrence: None)
  Receive Date: 20050303
  Receipt Date: 20050211
  Transmission Date: 20050727
  Serious: Yes (Hospitalization)
  Sender: FDA-Public Use
  Company Number: US_010158902

PATIENT
  Age: 49 Year
  Sex: Female
  Weight: 49 kg

DRUGS (6)
  1. HUMALOG [Suspect]
     Indication: DIABETES MELLITUS
     Dates: start: 19980101
  2. HUMULIN N [Suspect]
     Indication: DIABETES MELLITUS
     Dosage: 22 U DAY
     Dates: start: 19910101
  3. HUMULIN U [Suspect]
  4. INSULIN [Suspect]
  5. SYNTHROID [Concomitant]
  6. LANTUS [Concomitant]

REACTIONS (8)
  - BLOOD GLUCOSE FLUCTUATION [None]
  - CARPAL TUNNEL SYNDROME [None]
  - FALL [None]
  - FEELING ABNORMAL [None]
  - INFECTION [None]
  - SWELLING [None]
  - WEIGHT FLUCTUATION [None]
  - WEIGHT LOSS POOR [None]
